FAERS Safety Report 11161475 (Version 1)
Quarter: 2015Q2

REPORT INFORMATION
  Report Type: Spontaneous
  Country: US (occurrence: US)
  Receive Date: 20150604
  Receipt Date: 20150604
  Transmission Date: 20150821
  Serious: No
  Sender: FDA-Public Use
  Company Number: US-SA-2014SA083476

PATIENT
  Age: 34 Year
  Sex: Female

DRUGS (2)
  1. LANTUS SOLOSTAR [Suspect]
     Active Substance: INSULIN GLARGINE
     Indication: GESTATIONAL DIABETES
     Dosage: DOSE:3 UNIT(S)
     Route: 065
     Dates: start: 20140619
  2. SOLOSTAR [Concomitant]
     Active Substance: DEVICE
     Indication: GESTATIONAL DIABETES
     Dates: start: 20140619

REACTIONS (1)
  - Exposure during pregnancy [Unknown]
